FAERS Safety Report 8986078 (Version 1)
Quarter: 2012Q4

REPORT INFORMATION
  Report Type: 
  Country: US (occurrence: None)
  Receive Date: 20121219
  Receipt Date: 20121219
  Transmission Date: 20130627
  Serious: Yes (Hospitalization)
  Sender: FDA-Public Use
  Company Number: None

PATIENT
  Sex: Male
  Weight: 78.5 kg

DRUGS (1)
  1. CISPLATIN [Suspect]
     Indication: HEAD AND NECK CANCER

REACTIONS (14)
  - Glossodynia [None]
  - Ageusia [None]
  - Dysphagia [None]
  - Hypophagia [None]
  - Weight decreased [None]
  - Asthenia [None]
  - Dehydration [None]
  - Malnutrition [None]
  - Radiation skin injury [None]
  - Oropharyngeal pain [None]
  - Blood urea increased [None]
  - Blood creatinine increased [None]
  - Gait disturbance [None]
  - Fluid intake reduced [None]
